FAERS Safety Report 4790183-6 (Version None)
Quarter: 2005Q4

REPORT INFORMATION
  Report Type: 
  Country: None (occurrence: None)
  Receive Date: 20051005
  Receipt Date: 20051005
  Transmission Date: 20060501
  Serious: No
  Sender: FDA-Public Use
  Company Number: None

PATIENT
  Age: 45 Year
  Sex: Female

DRUGS (2)
  1. CELEXA [Suspect]
     Indication: DEPRESSION
     Dosage: 1460 MG PO ALOT
     Route: 048
  2. ALPRAZOLAM [Concomitant]

REACTIONS (8)
  - AGITATION [None]
  - DYSARTHRIA [None]
  - FAECAL INCONTINENCE [None]
  - FEELING JITTERY [None]
  - INTENTIONAL DRUG MISUSE [None]
  - MARITAL PROBLEM [None]
  - OVERDOSE [None]
  - VOMITING [None]
